FAERS Safety Report 5141801-4 (Version None)
Quarter: 2006Q4

REPORT INFORMATION
  Report Type: 
  Country: None (occurrence: None)
  Receive Date: 20061027
  Receipt Date: 20061019
  Transmission Date: 20070319
  Serious: Yes (Other)
  Sender: FDA-Public Use
  Company Number: 2006129003

PATIENT
  Sex: Male

DRUGS (1)
  1. ATARAX -P (IV/IM) (HYDROXYZINE HYDROCHLORIDE) [Suspect]
     Dosage: 100 MG, INTRAVENOUS
     Route: 042
     Dates: start: 20061017

REACTIONS (12)
  - BALANCE DISORDER [None]
  - BLISTER [None]
  - DIZZINESS [None]
  - DYSURIA [None]
  - ERYTHEMA [None]
  - FEELING ABNORMAL [None]
  - HANGOVER [None]
  - HEADACHE [None]
  - HYPOAESTHESIA [None]
  - MALAISE [None]
  - MONOPLEGIA [None]
  - PAIN [None]
